FAERS Safety Report 5719449-X (Version None)
Quarter: 2008Q2

REPORT INFORMATION
  Report Type: 
  Country: None (occurrence: None)
  Receive Date: 20080428
  Receipt Date: 20080415
  Transmission Date: 20081010
  Serious: Yes (Hospitalization, Other)
  Sender: FDA-Public Use
  Company Number: US-AMGEN-QUU274775

PATIENT
  Sex: Female

DRUGS (1)
  1. ENBREL [Suspect]
     Indication: PSORIATIC ARTHROPATHY
     Route: 058
     Dates: start: 20001001, end: 20080104

REACTIONS (4)
  - BACK PAIN [None]
  - CHOLELITHIASIS [None]
  - LUNG INFILTRATION [None]
  - PULMONARY TUBERCULOSIS [None]
